FAERS Safety Report 9414370 (Version 6)
Quarter: 2015Q2

REPORT INFORMATION
  Report Type: Report from Study
  Country: CA (occurrence: CA)
  Receive Date: 20130723
  Receipt Date: 20150625
  Transmission Date: 20150821
  Serious: Yes (Other)
  Sender: FDA-Public Use
  Company Number: CA-ROCHE-1250530

PATIENT
  Age: 46 Year
  Sex: Female
  Weight: 97 kg

DRUGS (13)
  1. XANAX [Concomitant]
     Active Substance: ALPRAZOLAM
  2. ACTEMRA [Suspect]
     Active Substance: TOCILIZUMAB
     Indication: RHEUMATOID ARTHRITIS
     Dosage: LAST DOSE : 11/SEP/2013.
     Route: 042
     Dates: start: 20130507
  3. RESTORIL (CANADA) [Concomitant]
  4. OXYCODONE [Concomitant]
     Active Substance: OXYCODONE
  5. ATACAND [Concomitant]
     Active Substance: CANDESARTAN CILEXETIL
  6. ZANTAC [Concomitant]
     Active Substance: RANITIDINE HYDROCHLORIDE
  7. CELEBREX [Concomitant]
     Active Substance: CELECOXIB
  8. ACTEMRA [Suspect]
     Active Substance: TOCILIZUMAB
     Route: 042
     Dates: start: 20140506, end: 20141230
  9. POTASSIUM CHLORIDE. [Concomitant]
     Active Substance: POTASSIUM CHLORIDE
  10. BISOPROLOL [Concomitant]
     Active Substance: BISOPROLOL
  11. PREDNISONE. [Concomitant]
     Active Substance: PREDNISONE
  12. EFFEXOR [Concomitant]
     Active Substance: VENLAFAXINE HYDROCHLORIDE
  13. ROSUVASTATIN CALCIUM. [Concomitant]
     Active Substance: ROSUVASTATIN CALCIUM

REACTIONS (10)
  - Oropharyngeal pain [Not Recovered/Not Resolved]
  - Cough [Not Recovered/Not Resolved]
  - Chills [Not Recovered/Not Resolved]
  - Hidradenitis [Unknown]
  - Pyrexia [Not Recovered/Not Resolved]
  - Infection [Recovered/Resolved]
  - Menstrual disorder [Not Recovered/Not Resolved]
  - Ingrowing nail [Recovered/Resolved]
  - Drug ineffective [Unknown]
  - Influenza [Recovered/Resolved]

NARRATIVE: CASE EVENT DATE: 201306
